FAERS Safety Report 24393237 (Version 1)
Quarter: 2024Q4

REPORT INFORMATION
  Report Type: Spontaneous
  Country: US (occurrence: US)
  Receive Date: 20241003
  Receipt Date: 20241003
  Transmission Date: 20250115
  Serious: No
  Sender: JOHNSON AND JOHNSON
  Company Number: US-VIIV HEALTHCARE LIMITED-US2024AMR118942

PATIENT
  Sex: Male

DRUGS (2)
  1. RILPIVIRINE [Suspect]
     Active Substance: RILPIVIRINE
     Indication: HIV infection
     Dosage: UNK UNK, Q8W (CABOTEGRAVIR 600MG + RILPIVIRINE 900MG(3ML) EVERY 8 WEEKS)
     Route: 030
  2. CABOTEGRAVIR [Suspect]
     Active Substance: CABOTEGRAVIR
     Indication: HIV infection
     Dosage: UNK UNK, Q8W (CABOTEGRAVIR 600MG + RILPIVIRINE 900MG(3ML) EVERY 8 WEEKS)
     Route: 030

REACTIONS (1)
  - COVID-19 [Unknown]
